FAERS Safety Report 25292435 (Version 3)
Quarter: 2025Q2

REPORT INFORMATION
  Report Type: Spontaneous
  Country: US (occurrence: US)
  Receive Date: 20250510
  Receipt Date: 20250530
  Transmission Date: 20250717
  Serious: No
  Sender: SANOFI AVENTIS
  Company Number: US-SANOFI-02500844

PATIENT
  Age: 45 Year
  Sex: Male

DRUGS (1)
  1. ADMELOG [Suspect]
     Active Substance: INSULIN LISPRO
     Indication: Type 1 diabetes mellitus
     Dosage: UNK, TID
     Route: 065

REACTIONS (4)
  - Dysphonia [Unknown]
  - Blood glucose increased [Unknown]
  - Device defective [Unknown]
  - Drug ineffective [Unknown]
